FAERS Safety Report 8306733-9 (Version None)
Quarter: 2012Q2

REPORT INFORMATION
  Report Type: 
  Country: None (occurrence: None)
  Receive Date: 20120420
  Receipt Date: 20120411
  Transmission Date: 20120825
  Serious: Yes (Death)
  Sender: FDA-Public Use
  Company Number: 1258313

PATIENT
  Sex: Female

DRUGS (1)
  1. CALCIUM CHLORIDE [Suspect]
     Indication: PRODUCT USED FOR UNKNOWN INDICATION
     Dosage: 1.4 G

REACTIONS (3)
  - MALAISE [None]
  - OVERDOSE [None]
  - INCORRECT DOSE ADMINISTERED [None]
